FAERS Safety Report 15015451 (Version 5)
Quarter: 2020Q1

REPORT INFORMATION
  Report Type: Spontaneous
  Country: IL (occurrence: IL)
  Receive Date: 20180615
  Receipt Date: 20200323
  Transmission Date: 20200409
  Serious: Yes (Hospitalization, Other)
  Sender: FDA-Public Use
  Company Number: IL-ACTELION-A-CH2018-171549

PATIENT
  Age: 54 Year
  Sex: Female

DRUGS (12)
  1. SILDENAFIL CITRATE. [Concomitant]
     Active Substance: SILDENAFIL CITRATE
  2. UPTRAVI [Suspect]
     Active Substance: SELEXIPAG
     Indication: PULMONARY ARTERIAL HYPERTENSION
     Dosage: 1600 ?G, BID
     Route: 048
     Dates: start: 20180427
  3. UPTRAVI [Suspect]
     Active Substance: SELEXIPAG
     Dosage: 1600 MCG, BID
     Route: 048
     Dates: start: 20180309
  4. ELIQUIS [Concomitant]
     Active Substance: APIXABAN
  5. SLOW K [Concomitant]
     Active Substance: POTASSIUM CHLORIDE
  6. CARVEDILOL. [Concomitant]
     Active Substance: CARVEDILOL
  7. UPTRAVI [Suspect]
     Active Substance: SELEXIPAG
     Dosage: 1600 MCG
     Route: 048
     Dates: start: 20190504
  8. NEOBLOC [Concomitant]
  9. ZAROXOLYN [Concomitant]
     Active Substance: METOLAZONE
  10. NEXIUM [Concomitant]
     Active Substance: ESOMEPRAZOLE MAGNESIUM
  11. FUSID [Concomitant]
  12. ALLORIL [Concomitant]
     Active Substance: ALLOPURINOL

REACTIONS (26)
  - End stage renal disease [Unknown]
  - Blood urea increased [Unknown]
  - Pruritus [Not Recovered/Not Resolved]
  - Myalgia [Recovering/Resolving]
  - Oxygen consumption increased [Not Recovered/Not Resolved]
  - Uraemic pruritus [Unknown]
  - Neck pain [Not Recovered/Not Resolved]
  - Cutaneous amyloidosis [Unknown]
  - Blood creatinine increased [Unknown]
  - Oedema peripheral [Unknown]
  - Concomitant disease aggravated [Recovering/Resolving]
  - Oliguria [Unknown]
  - Fluid retention [Unknown]
  - Headache [Not Recovered/Not Resolved]
  - Localised oedema [Recovering/Resolving]
  - Renal failure [Unknown]
  - Pulmonary embolism [Unknown]
  - Mitral valve repair [Recovered/Resolved]
  - Drug ineffective [Recovering/Resolving]
  - Anuria [Unknown]
  - Peritoneal dialysis [Unknown]
  - Mitral valve incompetence [Unknown]
  - Micturition frequency decreased [Unknown]
  - Weight increased [Unknown]
  - Dyspnoea [Not Recovered/Not Resolved]
  - Cough [Not Recovered/Not Resolved]

NARRATIVE: CASE EVENT DATE: 201804
